FAERS Safety Report 13268671 (Version 1)
Quarter: 2017Q1

REPORT INFORMATION
  Report Type: Spontaneous
  Country: US (occurrence: US)
  Receive Date: 20170224
  Receipt Date: 20170224
  Transmission Date: 20170428
  Serious: Yes (Life-Threatening)
  Sender: FDA-Public Use
  Company Number: None

PATIENT
  Age: 7 Year
  Sex: Female
  Weight: 22.05 kg

DRUGS (1)
  1. GADOLINIUM CONTRAST [Suspect]
     Active Substance: GADOLINIUM
     Indication: NUCLEAR MAGNETIC RESONANCE IMAGING
     Route: 042
     Dates: start: 20170127, end: 20170127

REACTIONS (4)
  - Dyspnoea [None]
  - Contrast media reaction [None]
  - Urticaria [None]
  - Cough [None]

NARRATIVE: CASE EVENT DATE: 20170127
